FAERS Safety Report 5688770-6 (Version None)
Quarter: 2008Q1

REPORT INFORMATION
  Report Type: 
  Country: None (occurrence: None)
  Receive Date: 20080331
  Receipt Date: 20080320
  Transmission Date: 20080703
  Serious: Yes (Other)
  Sender: FDA-Public Use
  Company Number: HQWYE396623JUL04

PATIENT
  Sex: Female

DRUGS (7)
  1. PREMPRO [Suspect]
  2. PROVERA [Suspect]
  3. MEDROXYPROGESTERONE ACETATE [Suspect]
  4. ESTRADERM [Suspect]
  5. ESTROGENS [Suspect]
  6. PREMARIN [Suspect]
  7. ESTRADIOL [Suspect]

REACTIONS (1)
  - BREAST CANCER METASTATIC [None]
